FAERS Safety Report 5616339-8 (Version None)
Quarter: 2008Q1

REPORT INFORMATION
  Report Type: 
  Country: None (occurrence: None)
  Receive Date: 20080204
  Receipt Date: 20080120
  Transmission Date: 20080703
  Serious: Yes (Death)
  Sender: FDA-Public Use
  Company Number: MPS1-1000009

PATIENT
  Age: 5 Year
  Sex: Male
  Weight: 15 kg

DRUGS (3)
  1. ALDURAZYME [Suspect]
     Indication: MUCOPOLYSACCHARIDOSIS I
     Dosage: 0.58 MG/KG, QW, INTRAVENOUS
     Route: 042
     Dates: start: 20061009, end: 20071011
  2. ANTIBIOTICS (NOS) (ANTIBIOTICS NOS) [Suspect]
     Indication: BACTERAEMIA
  3. ANTIBIOTICS (NOS) (ANTIBIOTICS NOS) [Suspect]
     Indication: SEPTIC SHOCK

REACTIONS (2)
  - BACTERAEMIA [None]
  - SEPTIC SHOCK [None]
